FAERS Safety Report 4823293-5 (Version None)
Quarter: 2005Q4

REPORT INFORMATION
  Report Type: 
  Country: None (occurrence: None)
  Receive Date: 20051107
  Receipt Date: 20051024
  Transmission Date: 20060501
  Serious: Yes (Hospitalization)
  Sender: FDA-Public Use
  Company Number: 2005P1000252

PATIENT
  Age: 69 Year
  Sex: Male
  Weight: 72 kg

DRUGS (10)
  1. RETEPLASE (RETEPLASE) [Suspect]
     Indication: ACUTE MYOCARDIAL INFARCTION
     Dosage: 5 UNIT;IV
     Route: 042
     Dates: start: 20041010, end: 20041010
  2. ABCIXIMAB (ABCIXIMAB) [Suspect]
     Indication: ACUTE MYOCARDIAL INFARCTION
     Dosage: 0.125 UG;IV
     Route: 042
     Dates: start: 20041010, end: 20041010
  3. ASPIRIN [Concomitant]
  4. CLOPIDOGREL BISULFATE [Concomitant]
  5. SIMVASTATIN [Concomitant]
  6. METOPROLOL [Concomitant]
  7. METOCLOPRAMIDE [Concomitant]
  8. METHOTRIMEPRAZINE [Concomitant]
  9. PIRETANIDE [Concomitant]
  10. POTASSIUM CHLORIDE [Concomitant]

REACTIONS (21)
  - CARDIAC FAILURE [None]
  - CARDIOMEGALY [None]
  - CHEST PAIN [None]
  - CORONARY ARTERY DISEASE [None]
  - CORONARY ARTERY STENOSIS [None]
  - DYSPNOEA [None]
  - HAEMOGLOBIN DECREASED [None]
  - HAEMOPTYSIS [None]
  - LUNG INFILTRATION [None]
  - LYMPHADENOPATHY [None]
  - MITRAL VALVE INCOMPETENCE [None]
  - MYOCARDIAL INFARCTION [None]
  - PLEURAL EFFUSION [None]
  - PNEUMONIA [None]
  - PRODUCTIVE COUGH [None]
  - PULMONARY CONGESTION [None]
  - PYREXIA [None]
  - RALES [None]
  - RHONCHI [None]
  - SPUTUM DISCOLOURED [None]
  - WHITE BLOOD CELL COUNT INCREASED [None]
